FAERS Safety Report 6998869-X (Version None)
Quarter: 2010Q3

REPORT INFORMATION
  Report Type: 
  Country: None (occurrence: None)
  Receive Date: 20100920
  Receipt Date: 20100208
  Transmission Date: 20110219
  Serious: No
  Sender: FDA-Public Use
  Company Number: US-ASTRAZENECA-2010SE05600

PATIENT
  Age: 57 Year
  Sex: Female

DRUGS (2)
  1. SEROQUEL [Suspect]
     Indication: INSOMNIA
     Route: 048
     Dates: start: 20100201
  2. THEOPHYLLINE [Concomitant]
     Indication: ASTHMA

REACTIONS (1)
  - DRUG LEVEL INCREASED [None]
